FAERS Safety Report 4727849-X (Version None)
Quarter: 2005Q3

REPORT INFORMATION
  Report Type: 
  Country: None (occurrence: None)
  Receive Date: 20050728
  Receipt Date: 20050421
  Transmission Date: 20060218
  Serious: Yes (Hospitalization, Other)
  Sender: FDA-Public Use
  Company Number: US-MERCK-0504USA04290

PATIENT
  Age: 49 Year
  Sex: Male
  Weight: 125 kg

DRUGS (10)
  1. VIOXX [Suspect]
     Indication: NEUROPATHY
     Route: 048
     Dates: start: 20040105, end: 20040227
  2. VIOXX [Suspect]
     Route: 048
     Dates: start: 20040105, end: 20040401
  3. GLUCOVANCE [Concomitant]
     Route: 065
     Dates: start: 20020419
  4. LIPITOR [Concomitant]
     Route: 065
     Dates: start: 20020408, end: 20040206
  5. ACTOS [Concomitant]
     Route: 065
     Dates: start: 20020503
  6. NORVASC [Concomitant]
     Route: 065
     Dates: start: 20031201, end: 20040306
  7. AMITRIPTYLINE HYDROCHLORIDE [Concomitant]
     Route: 065
     Dates: start: 20031105
  8. NEURONTIN [Concomitant]
     Route: 065
     Dates: start: 20031117
  9. ZYRTEC [Concomitant]
     Route: 065
     Dates: start: 20040213
  10. FLAXSEED [Concomitant]
     Route: 065

REACTIONS (26)
  - ACUTE CORONARY SYNDROME [None]
  - ATELECTASIS [None]
  - BRONCHITIS [None]
  - CHOLELITHIASIS [None]
  - CORONARY ARTERY DISEASE [None]
  - DEAFNESS [None]
  - DEPRESSION [None]
  - DYSPNOEA [None]
  - FOLLICULITIS [None]
  - HEPATIC STEATOSIS [None]
  - HYPOAESTHESIA [None]
  - INCISION SITE COMPLICATION [None]
  - INSOMNIA [None]
  - LIMB INJURY [None]
  - LOCALISED INFECTION [None]
  - MYOCARDIAL INFARCTION [None]
  - NASAL SINUS DRAINAGE [None]
  - NAUSEA [None]
  - OEDEMA PERIPHERAL [None]
  - OTITIS MEDIA [None]
  - PLEURAL EFFUSION [None]
  - SINUSITIS [None]
  - SKIN LESION [None]
  - SUNBURN [None]
  - TINNITUS [None]
  - VOMITING [None]
